FAERS Safety Report 25876858 (Version 1)
Quarter: 2025Q4

REPORT INFORMATION
  Report Type: Spontaneous
  Country: US (occurrence: US)
  Receive Date: 20251003
  Receipt Date: 20251003
  Transmission Date: 20260117
  Serious: Yes (Other)
  Sender: GLAXOSMITHKLINE
  Company Number: US-GLAXOSMITHKLINE INC-US2025125612

PATIENT
  Age: 44 Year
  Sex: Female

DRUGS (2)
  1. NUCALA [Suspect]
     Active Substance: MEPOLIZUMAB
     Indication: Eosinophilic granulomatosis with polyangiitis
     Dosage: 300 MG, Q4W
  2. NUCALA [Suspect]
     Active Substance: MEPOLIZUMAB
     Indication: Asthma

REACTIONS (5)
  - Eosinophilic granulomatosis with polyangiitis [Unknown]
  - Condition aggravated [Unknown]
  - Asthma [Unknown]
  - Product use issue [Unknown]
  - Therapeutic response shortened [Unknown]

NARRATIVE: CASE EVENT DATE: 20210901
